FAERS Safety Report 11639911 (Version 1)
Quarter: 2015Q4

REPORT INFORMATION
  Report Type: Report from Study
  Country: US (occurrence: US)
  Receive Date: 20151019
  Receipt Date: 20151019
  Transmission Date: 20160304
  Serious: Yes (Other)
  Sender: FDA-Public Use
  Company Number: US-AMGEN-USASL2015107475

PATIENT
  Age: 80 Year
  Sex: Female

DRUGS (3)
  1. PROLIA [Suspect]
     Active Substance: DENOSUMAB
     Indication: PRODUCT USED FOR UNKNOWN INDICATION
     Dosage: UNK
     Route: 065
  2. VITAMIN D                          /00107901/ [Concomitant]
     Active Substance: ERGOCALCIFEROL
  3. CALCIUM [Concomitant]
     Active Substance: CALCIUM

REACTIONS (7)
  - Adverse drug reaction [Unknown]
  - Intraventricular haemorrhage [Unknown]
  - Injection site laceration [Unknown]
  - Injection site haemorrhage [Unknown]
  - Injection site scab [Not Recovered/Not Resolved]
  - Pneumonia [Unknown]
  - Laceration [Unknown]

NARRATIVE: CASE EVENT DATE: 2015
